FAERS Safety Report 24163951 (Version 1)
Quarter: 2024Q3

REPORT INFORMATION
  Report Type: Spontaneous
  Country: US (occurrence: US)
  Receive Date: 20240801
  Receipt Date: 20240801
  Transmission Date: 20241016
  Serious: No
  Sender: UPSHER-SMITH
  Company Number: US-UPSHER-SMITH LABORATORIES, LLC-2023USL00939

PATIENT
  Sex: Male

DRUGS (1)
  1. VIGADRONE [Suspect]
     Active Substance: VIGABATRIN
     Indication: Infantile spasms
     Dosage: 1250 MG (25 ML), 2X/DAY AS DIRECTED
     Route: 048
     Dates: start: 20221214

REACTIONS (3)
  - Crying [Unknown]
  - Gastrointestinal disorder [Unknown]
  - Ear disorder [Unknown]
